FAERS Safety Report 14204875 (Version 1)
Quarter: 2017Q4

REPORT INFORMATION
  Report Type: Spontaneous
  Country: FR (occurrence: FR)
  Receive Date: 20171120
  Receipt Date: 20171120
  Transmission Date: 20180321
  Serious: Yes (Hospitalization)
  Sender: FDA-Public Use
  Company Number: FR-PFIZER INC-2017493685

PATIENT
  Age: 51 Year
  Sex: Male

DRUGS (20)
  1. TAZOCILLINE [Suspect]
     Active Substance: PIPERACILLIN SODIUM\TAZOBACTAM SODIUM
     Dosage: 4 G, 4X/DAY (4 G/500 MG)
     Route: 042
     Dates: start: 20170731, end: 20170804
  2. PARACETAMOL [Concomitant]
     Active Substance: ACETAMINOPHEN
     Dosage: 1 G, 4X/DAY AS NEEDED
     Dates: start: 20170720, end: 20170729
  3. DEXAMETHASONE. [Concomitant]
     Active Substance: DEXAMETHASONE
     Dosage: 40 MG, UNK
     Dates: start: 20170721, end: 20170724
  4. DEXAMETHASONE. [Concomitant]
     Active Substance: DEXAMETHASONE
     Dosage: UNK
     Dates: start: 20170808
  5. DARATUMUMAB [Concomitant]
     Active Substance: DARATUMUMAB
     Dosage: 1580 MG, UNK
     Dates: start: 20170725
  6. REVLIMID [Concomitant]
     Active Substance: LENALIDOMIDE
     Dosage: 25 MG, DAILY
     Dates: start: 20170725, end: 20170805
  7. AXEPIM [Suspect]
     Active Substance: CEFEPIME HYDROCHLORIDE
     Dosage: 2 G, 2X/DAY
     Route: 042
     Dates: start: 20170716, end: 20170720
  8. KARDEGIC [Concomitant]
     Active Substance: ASPIRIN DL-LYSINE
     Dosage: 75 MG, DAILY
  9. ZELITREX [Concomitant]
     Active Substance: VALACYCLOVIR HYDROCHLORIDE
     Dosage: 500 MG, 2X/DAY
  10. CIPROFLOXACIN. [Concomitant]
     Active Substance: CIPROFLOXACIN
     Indication: LUNG CONSOLIDATION
     Dosage: 400 MG, 3X/DAY
     Dates: start: 20170731, end: 20170804
  11. CASPOFUNGIN [Concomitant]
     Active Substance: CASPOFUNGIN
     Indication: LUNG CONSOLIDATION
     Dosage: 70 MG, UNK
     Dates: start: 20170731, end: 20170804
  12. BORTEZOMIB [Concomitant]
     Active Substance: BORTEZOMIB
     Dosage: 2.25 MG, UNK
     Dates: start: 20170411, end: 20170710
  13. DARATUMUMAB [Concomitant]
     Active Substance: DARATUMUMAB
     Dosage: UNK
     Dates: start: 20170808
  14. AUGMENTIN [Suspect]
     Active Substance: AMOXICILLIN\CLAVULANATE POTASSIUM
     Dosage: 1 G, 3X/DAY
     Route: 048
     Dates: start: 20170710, end: 20170716
  15. LINEZOLID. [Concomitant]
     Active Substance: LINEZOLID
     Dosage: 600 MG, 2X/DAY
     Dates: start: 20170728, end: 20170731
  16. THALIDOMIDE [Concomitant]
     Active Substance: THALIDOMIDE
     Dosage: 50 MG, DAILY
     Dates: start: 20170704, end: 20170710
  17. ENOXAPARIN [Concomitant]
     Active Substance: ENOXAPARIN
     Dosage: 4000 IU, UNK
     Dates: start: 20170727, end: 20170730
  18. TAZOCILLINE [Suspect]
     Active Substance: PIPERACILLIN SODIUM\TAZOBACTAM SODIUM
     Dosage: 4 G, 3X/DAY (4 G/500 MG)
     Route: 042
     Dates: start: 20170727, end: 20170731
  19. BACTRIM [Concomitant]
     Active Substance: SULFAMETHOXAZOLE\TRIMETHOPRIM
     Dosage: THREE TIMES WEEKLY
  20. SPECIAFOLDINE [Concomitant]
     Active Substance: FOLIC ACID
     Dosage: THREE TIMES WEEKLY

REACTIONS (1)
  - Hyperthermia [Recovered/Resolved]

NARRATIVE: CASE EVENT DATE: 20170710
